FAERS Safety Report 15866098 (Version 1)
Quarter: 2019Q1

REPORT INFORMATION
  Report Type: Report from Study
  Country: US (occurrence: US)
  Receive Date: 20190125
  Receipt Date: 20190125
  Transmission Date: 20190417
  Serious: Yes (Other)
  Sender: FDA-Public Use
  Company Number: US-AMGEN INC.-USASL2019011260

PATIENT
  Age: 46 Year
  Sex: Female

DRUGS (1)
  1. AIMOVIG [Suspect]
     Active Substance: ERENUMAB-AOOE
     Indication: MIGRAINE WITHOUT AURA
     Dosage: 140 MG, UNK
     Route: 065
     Dates: start: 201809

REACTIONS (1)
  - Hyperhidrosis [Unknown]

NARRATIVE: CASE EVENT DATE: 201810
